FAERS Safety Report 8267397-6 (Version None)
Quarter: 2012Q2

REPORT INFORMATION
  Report Type: 
  Country: None (occurrence: None)
  Receive Date: 20120409
  Receipt Date: 20120328
  Transmission Date: 20120825
  Serious: Yes (Hospitalization, Other)
  Sender: FDA-Public Use
  Company Number: PHHY2012IL026395

PATIENT
  Sex: Female

DRUGS (1)
  1. LAMISIL [Suspect]
     Indication: FUNGAL INFECTION
     Dosage: 1 DF, QD
     Route: 048

REACTIONS (42)
  - TOXIC EPIDERMAL NECROLYSIS [None]
  - STEVENS-JOHNSON SYNDROME [None]
  - LIVER FUNCTION TEST ABNORMAL [None]
  - PARAESTHESIA [None]
  - STOMATITIS [None]
  - BLISTER [None]
  - CONJUNCTIVAL ULCER [None]
  - THROMBOCYTOPENIA [None]
  - HEPATIC ENZYME INCREASED [None]
  - NAIL HYPERTROPHY [None]
  - INFLUENZA LIKE ILLNESS [None]
  - HEADACHE [None]
  - DRY EYE [None]
  - PURPURA [None]
  - PIGMENTATION DISORDER [None]
  - ALANINE AMINOTRANSFERASE INCREASED [None]
  - CHOLESTASIS [None]
  - HYPERHIDROSIS [None]
  - ASTHENIA [None]
  - EYE IRRITATION [None]
  - PAIN [None]
  - ARTHRALGIA [None]
  - RASH PAPULAR [None]
  - SKIN EXFOLIATION [None]
  - EYE DISCHARGE [None]
  - KERATITIS [None]
  - PRURITUS GENERALISED [None]
  - RASH PUSTULAR [None]
  - CORNEAL EROSION [None]
  - EYELID EXFOLIATION [None]
  - LEUKOPENIA [None]
  - SKIN INFECTION [None]
  - VAGINAL INFLAMMATION [None]
  - FEELING ABNORMAL [None]
  - MUCOSAL INFLAMMATION [None]
  - CHEILITIS [None]
  - GENERALISED ERYTHEMA [None]
  - BLOOD BILIRUBIN INCREASED [None]
  - EXFOLIATIVE RASH [None]
  - HYPONATRAEMIA [None]
  - PYREXIA [None]
  - ASPARTATE AMINOTRANSFERASE INCREASED [None]
